FAERS Safety Report 7635485-0 (Version None)
Quarter: 2011Q3

REPORT INFORMATION
  Report Type: 
  Country: None (occurrence: None)
  Receive Date: 20110726
  Receipt Date: 20110726
  Transmission Date: 20111222
  Serious: Yes (Other)
  Sender: FDA-Public Use
  Company Number: None

PATIENT
  Age: 57 Year
  Sex: Female
  Weight: 57.152 kg

DRUGS (1)
  1. PROVIGIL [Suspect]
     Indication: SOMNOLENCE
     Dosage: 1 TABLET
     Route: 048
     Dates: start: 20110618, end: 20110712

REACTIONS (6)
  - PRODUCT QUALITY ISSUE [None]
  - PALPITATIONS [None]
  - ANXIETY [None]
  - PRODUCT TASTE ABNORMAL [None]
  - DIZZINESS [None]
  - PRODUCT ODOUR ABNORMAL [None]
